FAERS Safety Report 17759443 (Version 1)
Quarter: 2020Q2

REPORT INFORMATION
  Report Type: Spontaneous
  Country: RO (occurrence: RO)
  Receive Date: 20200508
  Receipt Date: 20200508
  Transmission Date: 20200714
  Serious: Yes (Other)
  Sender: FDA-Public Use
  Company Number: RO-AUROBINDO-AUR-APL-2020-022308

PATIENT
  Age: 61 Year
  Sex: Male

DRUGS (12)
  1. DONEPEZIL. [Suspect]
     Active Substance: DONEPEZIL
     Indication: MAJOR DEPRESSION
     Dosage: UNK
     Route: 065
  2. DONEPEZIL. [Suspect]
     Active Substance: DONEPEZIL
     Indication: PERSONALITY CHANGE
     Dosage: UNK
     Route: 065
  3. CLONAZEPAM. [Concomitant]
     Active Substance: CLONAZEPAM
     Indication: MAJOR DEPRESSION
     Dosage: 1 MILLIGRAM, ONCE A DAY
     Route: 065
  4. ESCITALOPRAM [Concomitant]
     Active Substance: ESCITALOPRAM OXALATE
     Indication: MAJOR DEPRESSION
     Dosage: 10 MILLIGRAM, ONCE A DAY
     Route: 065
  5. MEMANTINE. [Suspect]
     Active Substance: MEMANTINE
     Indication: DEMENTIA
     Dosage: 20 MILLIGRAM, ONCE A DAY
     Route: 065
  6. TRAZODONE [Suspect]
     Active Substance: TRAZODONE HYDROCHLORIDE
     Indication: PERSONALITY CHANGE
     Dosage: UNK
     Route: 065
  7. MEMANTINE. [Suspect]
     Active Substance: MEMANTINE
     Indication: PERSONALITY CHANGE
     Dosage: UNK
     Route: 065
  8. DONEPEZIL. [Suspect]
     Active Substance: DONEPEZIL
     Indication: DEMENTIA
     Dosage: 10 MILLIGRAM, ONCE A DAY
     Route: 065
  9. TRAZODONE [Suspect]
     Active Substance: TRAZODONE HYDROCHLORIDE
     Indication: MAJOR DEPRESSION
     Dosage: 100 MILLIGRAM, ONCE A DAY
     Route: 065
  10. TRAZODONE [Suspect]
     Active Substance: TRAZODONE HYDROCHLORIDE
     Indication: DEMENTIA
     Dosage: UNK
     Route: 065
  11. MEMANTINE. [Suspect]
     Active Substance: MEMANTINE
     Indication: MAJOR DEPRESSION
     Dosage: UNK
     Route: 065
  12. ARIPIPRAZOLE. [Suspect]
     Active Substance: ARIPIPRAZOLE
     Indication: ABNORMAL BEHAVIOUR
     Dosage: 10 MILLIGRAM, ONCE A DAY
     Route: 048

REACTIONS (3)
  - Treatment failure [Unknown]
  - Disinhibition [Unknown]
  - Loss of personal independence in daily activities [Unknown]
